FAERS Safety Report 6059243-6 (Version None)
Quarter: 2009Q1

REPORT INFORMATION
  Report Type: 
  Country: None (occurrence: None)
  Receive Date: 20090130
  Receipt Date: 20090106
  Transmission Date: 20090719
  Serious: Yes (Other)
  Sender: FDA-Public Use
  Company Number: US-MERCK-0901USA01520

PATIENT
  Age: 23 Year
  Sex: Female
  Weight: 61 kg

DRUGS (13)
  1. FLEXERIL [Suspect]
     Indication: MUSCLE SPASMS
     Route: 048
     Dates: start: 20070101
  2. HUMIRA [Suspect]
     Indication: ANKYLOSING SPONDYLITIS
     Route: 065
     Dates: start: 20080401
  3. VICODIN [Suspect]
     Indication: PAIN
     Route: 048
  4. LEXAPRO [Suspect]
     Indication: DEPRESSION
     Route: 048
     Dates: start: 20071023
  5. CHLORMEZANONE [Suspect]
     Indication: DRUG USE FOR UNKNOWN INDICATION
     Route: 048
  6. ELAVIL [Suspect]
     Indication: MIGRAINE
     Route: 048
     Dates: start: 20070501
  7. MAXALT [Suspect]
     Indication: HEADACHE
     Route: 048
     Dates: start: 20070501
  8. PREGABALIN [Suspect]
     Indication: DRUG USE FOR UNKNOWN INDICATION
     Route: 048
     Dates: start: 20070601
  9. CELECOXIB [Suspect]
     Indication: ANKYLOSING SPONDYLITIS
     Route: 048
     Dates: start: 20070601
  10. BUPROPION HYDROCHLORIDE [Suspect]
     Indication: DEPRESSION
     Route: 048
     Dates: start: 20080110
  11. MINOCYCLINE [Suspect]
     Indication: ACNE
     Route: 048
     Dates: start: 20080313
  12. CLINDAMYCIN [Suspect]
     Indication: LOCALISED INFECTION
     Route: 048
  13. TETANUS TOXOID [Suspect]
     Indication: PROPHYLAXIS
     Route: 030
     Dates: start: 20080701, end: 20080701

REACTIONS (5)
  - ASTHENIA [None]
  - DRUG INTERACTION [None]
  - LOSS OF CONSCIOUSNESS [None]
  - PAIN IN EXTREMITY [None]
  - TREMOR [None]
